FAERS Safety Report 17475616 (Version 3)
Quarter: 2020Q2

REPORT INFORMATION
  Report Type: Spontaneous
  Country: US (occurrence: US)
  Receive Date: 20200228
  Receipt Date: 20200413
  Transmission Date: 20200713
  Serious: Yes (Other)
  Sender: FDA-Public Use
  Company Number: US-PFIZER INC-2020089347

PATIENT
  Age: 81 Year
  Sex: Female
  Weight: 75.6 kg

DRUGS (1)
  1. VYNDAQEL [Suspect]
     Active Substance: TAFAMIDIS MEGLUMINE
     Indication: AMYLOIDOSIS
     Dosage: 4 DF, 1X/DAY (4 CAPSULES AT ONE TIME)
     Dates: start: 20200226

REACTIONS (5)
  - Off label use [Unknown]
  - Product use in unapproved indication [Unknown]
  - Choking [Unknown]
  - Dysphagia [Not Recovered/Not Resolved]
  - Diarrhoea [Unknown]
